FAERS Safety Report 23004456 (Version 2)
Quarter: 2023Q4

REPORT INFORMATION
  Report Type: Spontaneous
  Country: SE (occurrence: SE)
  Receive Date: 20230928
  Receipt Date: 20231009
  Transmission Date: 20240109
  Serious: Yes (Hospitalization)
  Sender: FDA-Public Use
  Company Number: SE-TEVA-2023-SE-2929898

PATIENT
  Age: 22 Year
  Sex: Male

DRUGS (2)
  1. DIAZEPAM [Suspect]
     Active Substance: DIAZEPAM
     Indication: Serotonin syndrome
     Dosage: 25MG
     Route: 065
  2. MIDOMAFETAMINE [Suspect]
     Active Substance: MIDOMAFETAMINE
     Indication: Suicide attempt
     Dosage: SEVEN TABLETS; 300MG EACH (TOTAL DOSE 2.1G).
     Route: 048

REACTIONS (3)
  - Serotonin syndrome [Recovering/Resolving]
  - Intentional overdose [Unknown]
  - Drug ineffective [Unknown]
